FAERS Safety Report 7446141-6 (Version None)
Quarter: 2011Q2

REPORT INFORMATION
  Report Type: 
  Country: None (occurrence: None)
  Receive Date: 20110429
  Receipt Date: 20110418
  Transmission Date: 20111010
  Serious: Yes (Hospitalization)
  Sender: FDA-Public Use
  Company Number: B0709987A

PATIENT
  Age: 41 Year
  Sex: Female
  Weight: 94 kg

DRUGS (1)
  1. MARAVIROC [Suspect]
     Dosage: 300MG TWICE PER DAY
     Route: 048

REACTIONS (3)
  - ASTHMA [None]
  - VOCAL CORD DISORDER [None]
  - BRONCHITIS [None]
